FAERS Safety Report 11841255 (Version 3)
Quarter: 2016Q2

REPORT INFORMATION
  Report Type: Spontaneous
  Country: US (occurrence: US)
  Receive Date: 20151216
  Receipt Date: 20160512
  Transmission Date: 20160815
  Serious: Yes (Death, Hospitalization, Other)
  Sender: FDA-Public Use
  Company Number: US-009507513-1512USA008583

PATIENT
  Sex: Female
  Weight: 63.49 kg

DRUGS (2)
  1. JANUMET [Suspect]
     Active Substance: METFORMIN HYDROCHLORIDE\SITAGLIPTIN PHOSPHATE
     Indication: TYPE 2 DIABETES MELLITUS
     Dosage: 50/1000, BID
     Route: 048
     Dates: start: 20100107, end: 20130319
  2. JANUVIA [Suspect]
     Active Substance: SITAGLIPTIN PHOSPHATE
     Indication: TYPE 2 DIABETES MELLITUS
     Dosage: 50 MG, BID
     Route: 048
     Dates: start: 200803, end: 20130208

REACTIONS (26)
  - Metastases to bone [Unknown]
  - Septic shock [Unknown]
  - Oedema peripheral [Unknown]
  - Rash [Unknown]
  - Metastases to lung [Unknown]
  - Bacteraemia [Unknown]
  - Lung neoplasm malignant [Unknown]
  - Pulmonary embolism [Unknown]
  - Thrombocytopenia [Unknown]
  - Pulmonary haemorrhage [Unknown]
  - Lymphadenopathy [Unknown]
  - Calcinosis [Unknown]
  - Hyperlipidaemia [Unknown]
  - Intervertebral disc degeneration [Unknown]
  - Uterine leiomyoma [Unknown]
  - Goitre [Unknown]
  - Pancreatic carcinoma metastatic [Fatal]
  - Dry skin [Unknown]
  - Drug ineffective [Unknown]
  - Metastases to liver [Unknown]
  - Pneumonia [Unknown]
  - Deep vein thrombosis [Unknown]
  - Anaemia [Unknown]
  - Metastases to spleen [Unknown]
  - Cardio-respiratory arrest [Fatal]
  - Cerebral infarction [Unknown]

NARRATIVE: CASE EVENT DATE: 201301
